FAERS Safety Report 5809682-0 (Version None)
Quarter: 2008Q3

REPORT INFORMATION
  Report Type: 
  Country: None (occurrence: None)
  Receive Date: 20080709
  Receipt Date: 20080626
  Transmission Date: 20090109
  Serious: Yes (Hospitalization)
  Sender: FDA-Public Use
  Company Number: 2008AL007803

PATIENT
  Age: 60 Year
  Sex: Female

DRUGS (4)
  1. DICLOFENAC SODIUM DELAYED-RELEASE [Suspect]
     Dosage: 75 MG;BID;
     Dates: start: 20080514, end: 20080528
  2. AMITRIPTYLINE HCL [Concomitant]
  3. PROPRANOLOL [Concomitant]
  4. ZOLMITRIPTAN [Concomitant]

REACTIONS (1)
  - HEPATITIS [None]
